FAERS Safety Report 4769956-1 (Version None)
Quarter: 2005Q3

REPORT INFORMATION
  Report Type: 
  Country: None (occurrence: None)
  Receive Date: 20050914
  Receipt Date: 20050914
  Transmission Date: 20060218
  Serious: Yes (Life-Threatening, Other)
  Sender: FDA-Public Use
  Company Number: None

PATIENT
  Age: 53 Year
  Sex: Male
  Weight: 72.5755 kg

DRUGS (1)
  1. VIOXX [Suspect]
     Indication: BACK DISORDER
     Dosage: 3 TIMES A DAY 50 MG
     Dates: start: 20000101, end: 20040101

REACTIONS (6)
  - BACK INJURY [None]
  - COMA [None]
  - CONVULSION [None]
  - JOINT INJURY [None]
  - LIMB INJURY [None]
  - ROAD TRAFFIC ACCIDENT [None]
